FAERS Safety Report 9350453 (Version 1)
Quarter: 2013Q2

REPORT INFORMATION
  Report Type: Spontaneous
  Country: US (occurrence: None)
  Receive Date: 20130613
  Receipt Date: 20130613
  Transmission Date: 20140414
  Serious: Yes (Disabling)
  Sender: FDA-Public Use
  Company Number: None

PATIENT
  Age: 76 Year
  Sex: Male
  Weight: 90.72 kg

DRUGS (10)
  1. LEVOFLOXACIN [Suspect]
     Indication: GROIN INFECTION
     Route: 048
     Dates: start: 20130515, end: 20130521
  2. SYNTHROID 50MCG [Concomitant]
  3. FINASTERIDE 5MG [Concomitant]
  4. ATENOLOL 25MG [Concomitant]
  5. ATORVASTATIN 40MG WATSON [Concomitant]
  6. VITAMIN D3 1000 IU [Concomitant]
  7. VITAMIN C 1000MG [Concomitant]
  8. VITAMIN B-12 500MCG [Concomitant]
  9. NIACCIN 1500MG [Concomitant]
  10. ASPIRIN 350MG [Concomitant]

REACTIONS (1)
  - Tendon rupture [None]
